FAERS Safety Report 7463916-8 (Version None)
Quarter: 2011Q2

REPORT INFORMATION
  Report Type: 
  Country: None (occurrence: None)
  Receive Date: 20110506
  Receipt Date: 20110427
  Transmission Date: 20111010
  Serious: Yes (Hospitalization)
  Sender: FDA-Public Use
  Company Number: US-GENZYME-CAMP-1001608

PATIENT
  Sex: Male
  Weight: 2.948 kg

DRUGS (1)
  1. CAMPATH [Suspect]
     Indication: MULTIPLE SCLEROSIS
     Dosage: UNK UNK, UNK
     Route: 050

REACTIONS (1)
  - PULMONARY DYSMATURITY SYNDROME [None]
